FAERS Safety Report 14320639 (Version 2)
Quarter: 2018Q1

REPORT INFORMATION
  Report Type: Spontaneous
  Country: US (occurrence: US)
  Receive Date: 20171222
  Receipt Date: 20180115
  Transmission Date: 20180509
  Serious: No
  Sender: FDA-Public Use
  Company Number: US-MYLANLABS-2017M1076706

PATIENT
  Age: 43 Year
  Sex: Female

DRUGS (1)
  1. ESTRADIOL TRANSDERMAL SYSTEM [Suspect]
     Active Substance: ESTRADIOL
     Indication: PREMATURE MENOPAUSE
     Dosage: UNK
     Route: 062
     Dates: start: 20171111

REACTIONS (6)
  - Feeling abnormal [Not Recovered/Not Resolved]
  - Application site pain [Recovered/Resolved]
  - Rash erythematous [Not Recovered/Not Resolved]
  - Product adhesion issue [Unknown]
  - Scar [Not Recovered/Not Resolved]
  - Application site burn [Recovering/Resolving]

NARRATIVE: CASE EVENT DATE: 20171118
